FAERS Safety Report 24345330 (Version 2)
Quarter: 2024Q3

REPORT INFORMATION
  Report Type: Report from Study
  Country: DE (occurrence: DE)
  Receive Date: 20240920
  Receipt Date: 20240925
  Transmission Date: 20241016
  Serious: Yes (Other)
  Sender: JAZZ
  Company Number: DE-JAZZ PHARMACEUTICALS-2024-DE-014895

PATIENT

DRUGS (8)
  1. EPIDIOLEX [Suspect]
     Active Substance: CANNABIDIOL
     Indication: Product used for unknown indication
     Dosage: EPIDYOLEX DOSAGE AT INITIATION: 2,5MG/KG TWICE DAILY (1,25ML TWICE DAILY),
     Route: 048
  2. EPIDIOLEX [Suspect]
     Active Substance: CANNABIDIOL
     Dosage: INCREASED TO 5MG/KG (2,5ML TWICE DAILY) TWICE DAILY AFTER 1 WEEK
     Route: 048
  3. EPIDIOLEX [Suspect]
     Active Substance: CANNABIDIOL
     Dosage: 3 MILLIGRAM/KILOGRAM
  4. OXCARBAZEPINE [Concomitant]
     Active Substance: OXCARBAZEPINE
     Indication: Product used for unknown indication
     Dosage: 1200 MILLIGRAM, BID
  5. OXCARBAZEPINE [Concomitant]
     Active Substance: OXCARBAZEPINE
     Dosage: 900 MILLIGRAM, BID
  6. SULTHIAME [Concomitant]
     Active Substance: SULTHIAME
     Indication: Product used for unknown indication
  7. PERAMPANEL [Concomitant]
     Active Substance: PERAMPANEL
     Indication: Product used for unknown indication
  8. CLOBAZAM [Concomitant]
     Active Substance: CLOBAZAM
     Indication: Product used for unknown indication

REACTIONS (4)
  - Dizziness [Recovered/Resolved]
  - Fall [Recovered/Resolved]
  - Forearm fracture [Recovered/Resolved]
  - Decreased appetite [Unknown]
